FAERS Safety Report 16831158 (Version 1)
Quarter: 2019Q3

REPORT INFORMATION
  Report Type: Spontaneous
  Country: US (occurrence: US)
  Receive Date: 20190920
  Receipt Date: 20190920
  Transmission Date: 20191005
  Serious: No
  Sender: FDA-Public Use
  Company Number: US-SHIRE-US201930732

PATIENT
  Sex: Female

DRUGS (1)
  1. NATPARA (PARATHYROID HORMONE) [Suspect]
     Active Substance: PARATHYROID HORMONE
     Indication: HYPOPARATHYROIDISM
     Dosage: UNK
     Route: 065
     Dates: start: 20151104

REACTIONS (6)
  - Fatigue [Unknown]
  - Nausea [Unknown]
  - Visual impairment [Unknown]
  - Hypoaesthesia [Unknown]
  - Muscle twitching [Unknown]
  - Headache [Unknown]
